FAERS Safety Report 10015793 (Version 2)
Quarter: 2014Q2

REPORT INFORMATION
  Report Type: Spontaneous
  Country: US (occurrence: US)
  Receive Date: 20140317
  Receipt Date: 20140416
  Transmission Date: 20141212
  Serious: Yes (Other)
  Sender: FDA-Public Use
  Company Number: US-GLAXOSMITHKLINE-A1063903A

PATIENT
  Age: 50 Year
  Sex: Female

DRUGS (2)
  1. VENTOLIN [Suspect]
     Indication: EXPOSURE TO TOXIC AGENT
     Dosage: 2PUFF AS REQUIRED
     Route: 055
     Dates: start: 201310
  2. IBUPROFEN [Concomitant]

REACTIONS (4)
  - Choking [Unknown]
  - Dyspnoea [Not Recovered/Not Resolved]
  - Treatment noncompliance [Unknown]
  - Product quality issue [Unknown]
